FAERS Safety Report 6898594-X (Version None)
Quarter: 2010Q3

REPORT INFORMATION
  Report Type: 
  Country: None (occurrence: None)
  Receive Date: 20100729
  Receipt Date: 20100722
  Transmission Date: 20110219
  Serious: Yes (Hospitalization)
  Sender: FDA-Public Use
  Company Number: 2010SP040507

PATIENT
  Age: 20 Year
  Sex: Female
  Weight: 84.8226 kg

DRUGS (1)
  1. IMPLANON [Suspect]
     Indication: CONTRACEPTION
     Dosage: SUBD
     Route: 059
     Dates: start: 20100201

REACTIONS (5)
  - HOT FLUSH [None]
  - LEGAL PROBLEM [None]
  - LOSS OF CONSCIOUSNESS [None]
  - MOOD SWINGS [None]
  - VIRAL INFECTION [None]
